FAERS Safety Report 24368718 (Version 1)
Quarter: 2024Q3

REPORT INFORMATION
  Report Type: Report from Study
  Country: CZ (occurrence: CZ)
  Receive Date: 20240926
  Receipt Date: 20240926
  Transmission Date: 20241017
  Serious: Yes (Other)
  Sender: ABBVIE
  Company Number: CZ-ABBVIE-5353561

PATIENT
  Age: 42 Year
  Sex: Male

DRUGS (2)
  1. HUMIRA [Suspect]
     Active Substance: ADALIMUMAB
     Indication: Ankylosing spondylitis
     Route: 058
     Dates: start: 20160628, end: 20230828
  2. HUMIRA [Suspect]
     Active Substance: ADALIMUMAB
     Route: 058

REACTIONS (4)
  - Autoimmune hepatitis [Recovering/Resolving]
  - Hyperuricaemia [Recovering/Resolving]
  - Liver disorder [Recovering/Resolving]
  - Steatohepatitis [Recovering/Resolving]

NARRATIVE: CASE EVENT DATE: 20230802
